FAERS Safety Report 20684124 (Version 1)
Quarter: 2022Q2

REPORT INFORMATION
  Report Type: Report from Study
  Country: GB (occurrence: GB)
  Receive Date: 20220407
  Receipt Date: 20220407
  Transmission Date: 20220721
  Serious: Yes (Other)
  Sender: FDA-Public Use
  Company Number: GB-NOVARTISPH-NVSC2021GB226829

PATIENT
  Age: 64 Year
  Sex: Male

DRUGS (1)
  1. MAYZENT [Suspect]
     Active Substance: SIPONIMOD
     Indication: Secondary progressive multiple sclerosis
     Dosage: 2 MG, QD
     Route: 048
     Dates: start: 20210329

REACTIONS (10)
  - Pneumonia [Recovering/Resolving]
  - Dyspnoea [Unknown]
  - Vision blurred [Unknown]
  - Ophthalmic migraine [Unknown]
  - COVID-19 [Unknown]
  - Anosmia [Unknown]
  - Hypertension [Unknown]
  - Pruritus [Not Recovered/Not Resolved]
  - Erythema [Not Recovered/Not Resolved]
  - Melanocytic naevus [Recovered/Resolved]

NARRATIVE: CASE EVENT DATE: 20210901
